FAERS Safety Report 12860003 (Version 2)
Quarter: 2016Q4

REPORT INFORMATION
  Report Type: Spontaneous
  Country: CN (occurrence: CN)
  Receive Date: 20161019
  Receipt Date: 20161110
  Transmission Date: 20170207
  Serious: Yes (Hospitalization, Other)
  Sender: FDA-Public Use
  Company Number: CN-GLAXOSMITHKLINE-CN2016GSK148849

PATIENT
  Sex: Female
  Weight: 49 kg

DRUGS (6)
  1. POTASSIUM CHLORIDE. [Suspect]
     Active Substance: POTASSIUM CHLORIDE
     Indication: PULMONARY ARTERIAL HYPERTENSION
     Dosage: UNK
     Dates: start: 20130520
  2. FUROSEMIDE. [Concomitant]
     Active Substance: FUROSEMIDE
     Dosage: UNK
     Dates: start: 20130520
  3. SPIRONOLACTONE. [Concomitant]
     Active Substance: SPIRONOLACTONE
     Dosage: UNK
     Dates: start: 20130520
  4. ZYBAN [Suspect]
     Active Substance: BUPROPION HYDROCHLORIDE
     Indication: PULMONARY ARTERIAL HYPERTENSION
     Dosage: UNK
     Dates: start: 20130520
  5. CEFUROXIME. [Concomitant]
     Active Substance: CEFUROXIME
     Dosage: UNK
     Dates: start: 20130520
  6. SILDENAFIL. [Concomitant]
     Active Substance: SILDENAFIL
     Dosage: UNK
     Dates: start: 20130513

REACTIONS (6)
  - Hyperuricaemia [Recovered/Resolved]
  - Cardiac failure [Recovering/Resolving]
  - Pulmonary arterial hypertension [Recovering/Resolving]
  - Acute kidney injury [Recovered/Resolved]
  - Chest pain [Recovered/Resolved]
  - Cor pulmonale [Recovering/Resolving]
